FAERS Safety Report 4520877-9 (Version None)
Quarter: 2004Q4

REPORT INFORMATION
  Report Type: 
  Country: None (occurrence: None)
  Receive Date: 20041206
  Receipt Date: 20041124
  Transmission Date: 20050328
  Serious: Yes (Death, Hospitalization)
  Sender: FDA-Public Use
  Company Number: HQWYE680824NOV04

PATIENT
  Age: 38 Year
  Sex: Male

DRUGS (8)
  1. MINOMYCIN  (MINOCYCLINE, INJECTION) [Suspect]
     Indication: UPPER RESPIRATORY TRACT INFLAMMATION
     Dosage: 1 DOSE AT 100 MG INTRAVENOUS DRIP
     Route: 041
     Dates: start: 20020928, end: 20020928
  2. METILON (METAMIZOLE SODIUM) [Concomitant]
  3. NEOPRAMIEL (METOCLOPRAMIDE) [Concomitant]
  4. FRUCTLACT (FRUCTOSE/POTASSIUM CHLORIDE/SODIUM CHLORIDE/SODIUM LACTATE) [Concomitant]
  5. CEFZON (CEFDINIR) [Concomitant]
  6. IBUPROFEN [Concomitant]
  7. HUSCODE (CHLORPHENAMINE MALEATE/DIHYDROCODEINE PHOSPHATE/METHYLEPHEDRI [Concomitant]
  8. SULPYRINE (METAMIZOLE SODIUM) [Concomitant]

REACTIONS (6)
  - CHEST PAIN [None]
  - COUGH [None]
  - HEPATITIS FULMINANT [None]
  - MULTI-ORGAN FAILURE [None]
  - PYREXIA [None]
  - UPPER RESPIRATORY TRACT INFLAMMATION [None]
